FAERS Safety Report 22151627 (Version 1)
Quarter: 2023Q1

REPORT INFORMATION
  Report Type: Spontaneous
  Country: IN (occurrence: IN)
  Receive Date: 20230329
  Receipt Date: 20230329
  Transmission Date: 20230418
  Serious: Yes (Other)
  Sender: FDA-Public Use
  Company Number: IN-GLAXOSMITHKLINE-INCH2023HLN012805

PATIENT

DRUGS (1)
  1. IBUPROFEN [Suspect]
     Active Substance: IBUPROFEN
     Indication: Myalgia
     Dosage: UNK

REACTIONS (7)
  - Pemphigoid [Unknown]
  - Blister [Unknown]
  - Scab [Unknown]
  - Skin erosion [Unknown]
  - Dermatitis exfoliative generalised [Unknown]
  - Skin lesion [Unknown]
  - Eosinophilia [Unknown]
